FAERS Safety Report 4594946-1 (Version None)
Quarter: 2005Q1

REPORT INFORMATION
  Report Type: 
  Country: None (occurrence: None)
  Receive Date: 20050301
  Receipt Date: 20030813
  Transmission Date: 20050727
  Serious: Yes (Hospitalization)
  Sender: FDA-Public Use
  Company Number: GB-AMGEN-US045915

PATIENT
  Sex: Female

DRUGS (5)
  1. ENBREL [Suspect]
     Indication: RHEUMATOID ARTHRITIS
     Route: 058
     Dates: start: 20030720, end: 20030814
  2. DICLOFENAC [Concomitant]
  3. CO-CODAMAOL [Concomitant]
  4. ASPIRIN [Concomitant]
  5. TRAMADOL HCL [Concomitant]

REACTIONS (7)
  - ARTHRITIS [None]
  - CHILLS [None]
  - CONDITION AGGRAVATED [None]
  - EAR PAIN [None]
  - HEADACHE [None]
  - PYREXIA [None]
  - VOMITING [None]
